FAERS Safety Report 4569406-4 (Version None)
Quarter: 2005Q1

REPORT INFORMATION
  Report Type: 
  Country: None (occurrence: None)
  Receive Date: 20050201
  Receipt Date: 20050119
  Transmission Date: 20050727
  Serious: Yes (Other)
  Sender: FDA-Public Use
  Company Number: 2004241519US

PATIENT
  Age: 66 Year
  Sex: Female
  Weight: 57.6068 kg

DRUGS (5)
  1. CELEBREX [Suspect]
     Indication: OSTEOARTHRITIS
     Dosage: 200 MG (200 MG, 1 IN 1 D), ORAL
     Route: 048
     Dates: start: 20010101
  2. ESOMEPRAZOLE (ESOMEPRAZOLE) [Concomitant]
  3. ACETYLSALICYLIC ACID SRT [Concomitant]
  4. ESTRADIOL [Concomitant]
  5. SIMVASTATIN [Concomitant]

REACTIONS (3)
  - CEREBRAL ARTERY STENOSIS [None]
  - PARAESTHESIA [None]
  - TRANSIENT ISCHAEMIC ATTACK [None]
